FAERS Safety Report 6741290-X (Version None)
Quarter: 2010Q2

REPORT INFORMATION
  Report Type: 
  Country: None (occurrence: None)
  Receive Date: 20100526
  Receipt Date: 20100512
  Transmission Date: 20101027
  Serious: Yes (Other)
  Sender: FDA-Public Use
  Company Number: US-WYE-H15120610

PATIENT
  Sex: Female
  Weight: 69.01 kg

DRUGS (3)
  1. PROTONIX [Suspect]
     Indication: ABDOMINAL PAIN UPPER
     Dates: start: 20080201, end: 20080909
  2. PROTONIX [Suspect]
     Dosage: 40 MG AS NEEDED
     Dates: start: 20080901, end: 20100101
  3. PROTONIX [Suspect]
     Dosage: RESTARTED 40 MG AS NEEDED
     Dates: start: 20100101

REACTIONS (1)
  - CHOLECYSTITIS INFECTIVE [None]
